FAERS Safety Report 8423681-4 (Version None)
Quarter: 2012Q2

REPORT INFORMATION
  Report Type: 
  Country: None (occurrence: None)
  Receive Date: 20120608
  Receipt Date: 20111021
  Transmission Date: 20120825
  Serious: No
  Sender: FDA-Public Use
  Company Number: US-ASTRAZENECA-2011SE64061

PATIENT
  Sex: Female

DRUGS (3)
  1. LISINOPRIL [Suspect]
     Route: 048
  2. CRESTOR [Suspect]
     Route: 048
  3. ATACAND [Suspect]
     Route: 048

REACTIONS (1)
  - RESTLESS LEGS SYNDROME [None]
